FAERS Safety Report 18382382 (Version 1)
Quarter: 2020Q4

REPORT INFORMATION
  Report Type: Spontaneous
  Country: US (occurrence: US)
  Receive Date: 20201014
  Receipt Date: 20201014
  Transmission Date: 20210114
  Serious: No
  Sender: FDA-Public Use
  Company Number: US-ALLERGAN-2034663US

PATIENT
  Age: 5 Decade
  Sex: Male

DRUGS (2)
  1. UBRELVY [Suspect]
     Active Substance: UBROGEPANT
     Indication: MIGRAINE
     Dosage: 100 MG
  2. UBRELVY [Suspect]
     Active Substance: UBROGEPANT
     Dosage: 50 MG
     Dates: start: 202002

REACTIONS (2)
  - SARS-CoV-2 test positive [Unknown]
  - Drug ineffective [Unknown]
